FAERS Safety Report 8203282-3 (Version None)
Quarter: 2012Q1

REPORT INFORMATION
  Report Type: 
  Country: None (occurrence: None)
  Receive Date: 20120312
  Receipt Date: 20120306
  Transmission Date: 20120608
  Serious: Yes (Other)
  Sender: FDA-Public Use
  Company Number: US-ROCHE-791234

PATIENT
  Sex: Female
  Weight: 57.204 kg

DRUGS (2)
  1. ACCUTANE [Suspect]
     Dates: start: 20040309, end: 20040609
  2. ACCUTANE [Suspect]
     Indication: ACNE
     Route: 065

REACTIONS (3)
  - COLITIS ULCERATIVE [None]
  - AUTOIMMUNE THYROIDITIS [None]
  - COLITIS MICROSCOPIC [None]
